FAERS Safety Report 19549019 (Version 2)
Quarter: 2021Q3

REPORT INFORMATION
  Report Type: Spontaneous
  Country: FR (occurrence: FR)
  Receive Date: 20210715
  Receipt Date: 20210802
  Transmission Date: 20211014
  Serious: Yes (Hospitalization, Other)
  Sender: FDA-Public Use
  Company Number: FR-JNJFOC-20210723807

PATIENT
  Sex: Female
  Weight: 57 kg

DRUGS (3)
  1. IMNOVID [Suspect]
     Active Substance: POMALIDOMIDE
     Indication: PLASMA CELL MYELOMA
     Route: 065
     Dates: start: 20210512
  2. APIXABAN [Concomitant]
     Active Substance: APIXABAN
     Indication: THROMBOSIS PROPHYLAXIS
  3. DARZALEX [Suspect]
     Active Substance: DARATUMUMAB
     Indication: PLASMA CELL MYELOMA
     Route: 065
     Dates: start: 20201215, end: 20210615

REACTIONS (7)
  - Acute kidney injury [Recovering/Resolving]
  - Anxiety [Unknown]
  - Diarrhoea [Recovered/Resolved]
  - Cardiac failure [Recovering/Resolving]
  - Capillary leak syndrome [Recovered/Resolved]
  - Plasma cell myeloma [Unknown]
  - Constipation [Recovered/Resolved]

NARRATIVE: CASE EVENT DATE: 20210118
